FAERS Safety Report 24308967 (Version 1)
Quarter: 2024Q3

REPORT INFORMATION
  Report Type: Spontaneous
  Country: US (occurrence: None)
  Receive Date: 20240911
  Receipt Date: 20240911
  Transmission Date: 20241016
  Serious: Yes (unspecified)
  Sender: Public
  Company Number: None

PATIENT
  Age: 85 Year
  Sex: Female

DRUGS (1)
  1. BACTROBAN [Suspect]
     Active Substance: MUPIROCIN CALCIUM
     Dates: start: 20220531, end: 20220607

REACTIONS (2)
  - Burns second degree [None]
  - Drug hypersensitivity [None]

NARRATIVE: CASE EVENT DATE: 20220607
